FAERS Safety Report 4829902-9 (Version None)
Quarter: 2005Q4

REPORT INFORMATION
  Report Type: 
  Country: None (occurrence: None)
  Receive Date: 20051115
  Receipt Date: 20051115
  Transmission Date: 20060501
  Serious: Yes (Life-Threatening, Hospitalization)
  Sender: FDA-Public Use
  Company Number: None

PATIENT
  Age: 48 Year
  Sex: Female
  Weight: 61.2356 kg

DRUGS (2)
  1. PEG-INTRON [Suspect]
     Indication: HEPATITIS C
     Dates: start: 20030101, end: 20050401
  2. PEG-INTRON [Suspect]
     Indication: HEPATITIS C
     Dates: start: 20031101, end: 20050501

REACTIONS (11)
  - CONDITION AGGRAVATED [None]
  - GUILLAIN-BARRE SYNDROME [None]
  - HEPATIC CIRRHOSIS [None]
  - JAUNDICE [None]
  - LIVER DISORDER [None]
  - LIVER TRANSPLANT [None]
  - MONONEUROPATHY MULTIPLEX [None]
  - MUSCLE DISORDER [None]
  - PANCREATIC DISORDER [None]
  - PULMONARY OEDEMA [None]
  - VASCULITIS [None]
